FAERS Safety Report 5858565-9 (Version None)
Quarter: 2008Q3

REPORT INFORMATION
  Report Type: 
  Country: None (occurrence: None)
  Receive Date: 20080826
  Receipt Date: 20080820
  Transmission Date: 20090109
  Serious: Yes (Other)
  Sender: FDA-Public Use
  Company Number: JP-PFIZER INC-2008060892

PATIENT
  Age: 50 Year
  Sex: Female
  Weight: 78 kg

DRUGS (6)
  1. ATARAX [Suspect]
     Indication: EMERGENCY CARE
     Dosage: DAILY DOSE:25MG
     Route: 030
     Dates: start: 20080713, end: 20080715
  2. PENTAZOCINE LACTATE [Suspect]
     Indication: EMERGENCY CARE
     Dosage: DAILY DOSE:15MG
     Route: 030
     Dates: start: 20080713, end: 20080715
  3. OMEPRAZOLE [Concomitant]
  4. SALINE MIXTURE [Concomitant]
     Route: 042
  5. VITAMEDIN CAPSULE [Concomitant]
  6. KN SOL. 3B [Concomitant]
     Route: 042

REACTIONS (4)
  - HYPOAESTHESIA [None]
  - INJECTION SITE INDURATION [None]
  - INJECTION SITE NECROSIS [None]
  - INJECTION SITE ULCER [None]
